FAERS Safety Report 9893404 (Version 2)
Quarter: 2014Q2

REPORT INFORMATION
  Report Type: Spontaneous
  Country: US (occurrence: US)
  Receive Date: 20140213
  Receipt Date: 20140516
  Transmission Date: 20141212
  Serious: Yes (Hospitalization, Other)
  Sender: FDA-Public Use
  Company Number: US-BAYER-2014-021949

PATIENT
  Age: 49 Year
  Sex: Female
  Weight: 83.45 kg

DRUGS (10)
  1. YASMIN [Suspect]
  2. OCELLA [Suspect]
  3. INSULIN NPH [Concomitant]
  4. GLUCOTROL [Concomitant]
     Dosage: 10 MG, UNK
  5. LOVASTIN [Concomitant]
  6. METFORMIN [Concomitant]
  7. ALBUTEROL [Concomitant]
  8. TRIAMCINOLONE [Concomitant]
  9. LISINOPRIL [Concomitant]
  10. IBUPROFEN [Concomitant]

REACTIONS (2)
  - Deep vein thrombosis [Recovered/Resolved]
  - Pulmonary embolism [None]
